FAERS Safety Report 6037868-1 (Version None)
Quarter: 2009Q1

REPORT INFORMATION
  Report Type: 
  Country: None (occurrence: None)
  Receive Date: 20090115
  Receipt Date: 20090108
  Transmission Date: 20090719
  Serious: Yes (Other)
  Sender: FDA-Public Use
  Company Number: US-WYE-H07587809

PATIENT
  Age: 37 Year
  Sex: Male
  Weight: 88.53 kg

DRUGS (1)
  1. PRIMATENE MIST [Suspect]
     Indication: ASTHMA
     Route: 048
     Dates: start: 20080701, end: 20081202

REACTIONS (1)
  - CEREBROVASCULAR ACCIDENT [None]
